FAERS Safety Report 24867175 (Version 1)
Quarter: 2025Q1

REPORT INFORMATION
  Report Type: Spontaneous
  Country: US (occurrence: None)
  Receive Date: 20250117
  Receipt Date: 20250117
  Transmission Date: 20250408
  Serious: Yes (Disabling)
  Sender: FDA-CTU
  Company Number: None

PATIENT
  Age: 76 Year
  Sex: Female
  Weight: 72.57 kg

DRUGS (8)
  1. SYSTANE LUBRICANT [Suspect]
     Active Substance: POLYETHYLENE GLYCOL 400\PROPYLENE GLYCOL
     Indication: Dry eye
     Dosage: 1-2 DRIOS AS BEEDED  ?1   ONCE A DAY AND SOMETIMES 2 TWICE A DAY   EYE DROPS
     Dates: start: 202410, end: 202412
  2. NIFEDIPINE [Concomitant]
     Active Substance: NIFEDIPINE
  3. BENAZEPRIL [Concomitant]
     Active Substance: BENAZEPRIL HYDROCHLORIDE
  4. LEVOTHYROXINE [Concomitant]
     Active Substance: LEVOTHYROXINE
  5. MULTI-VITAMIN [Concomitant]
     Active Substance: .ALPHA.-TOCOPHEROL ACETATE, DL-\ASCORBIC ACID\CYANOCOBALAMIN\FLUORIDE ION\FOLIC ACID\NIACIN\PYRIDOXI
  6. GINKGO [Concomitant]
     Active Substance: GINKGO
  7. TEA [Concomitant]
     Active Substance: TEA LEAF
  8. Pepper Mint 2 ea [Concomitant]

REACTIONS (5)
  - Vision blurred [None]
  - Eye infection [None]
  - Lacrimation increased [None]
  - Headache [None]
  - Ocular hyperaemia [None]

NARRATIVE: CASE EVENT DATE: 20241101
